FAERS Safety Report 6429347-4 (Version None)
Quarter: 2009Q4

REPORT INFORMATION
  Report Type: 
  Country: None (occurrence: None)
  Receive Date: 20091102
  Receipt Date: 20091019
  Transmission Date: 20100525
  Serious: Yes (Hospitalization, Other)
  Sender: FDA-Public Use
  Company Number: TRP_06423_2009

PATIENT
  Sex: Male

DRUGS (3)
  1. RIBASPHERE [Suspect]
     Indication: HEPATITIS C
     Dosage: DF
     Dates: start: 20090807
  2. PEG-INTRON [Suspect]
     Indication: HEPATITIS C
     Dosage: DF SUBCUTANEOUS
     Route: 058
     Dates: start: 20090807
  3. DILTIAZEM [Concomitant]

REACTIONS (13)
  - ARTHRITIS [None]
  - BURNING SENSATION [None]
  - CONDITION AGGRAVATED [None]
  - FATIGUE [None]
  - HYPERSOMNIA [None]
  - IMMUNE SYSTEM DISORDER [None]
  - INJECTION SITE ERYTHEMA [None]
  - INJECTION SITE PAIN [None]
  - INJECTION SITE REACTION [None]
  - INTERVERTEBRAL DISC DISORDER [None]
  - MYALGIA [None]
  - NERVE INJURY [None]
  - VARICELLA [None]
